FAERS Safety Report 9841619 (Version 3)
Quarter: 2014Q1

REPORT INFORMATION
  Report Type: Spontaneous
  Country: AE (occurrence: AE)
  Receive Date: 20140124
  Receipt Date: 20140205
  Transmission Date: 20141002
  Serious: Yes (Death, Life-Threatening, Hospitalization)
  Sender: FDA-Public Use
  Company Number: PHHY2014AE008313

PATIENT
  Age: 64 Year
  Sex: Female

DRUGS (8)
  1. ACLASTA [Suspect]
     Indication: OSTEOPOROSIS
     Dosage: 5 MG, UNK
     Route: 042
     Dates: start: 20131229
  2. ENBREL [Concomitant]
     Indication: RHEUMATOID ARTHRITIS
     Dosage: 5 MG, PER WEEK
     Route: 058
     Dates: start: 2012
  3. METHOTREXATE [Concomitant]
     Indication: RHEUMATOID ARTHRITIS
     Dosage: 10 MG, PER WEEK
     Dates: start: 2012
  4. VITAMIN D3 [Concomitant]
     Dosage: UNK
  5. IMMUNOSUPPRESSANTS [Concomitant]
     Dosage: UNK
  6. ANALGESICS [Concomitant]
     Dosage: UNK
  7. NSAID^S [Concomitant]
     Dosage: UNK
  8. FOLIC ACID [Concomitant]
     Indication: RHEUMATOID ARTHRITIS
     Dosage: 5 MG, UNK
     Dates: start: 2012

REACTIONS (20)
  - Death [Fatal]
  - Depressed level of consciousness [Not Recovered/Not Resolved]
  - Skin ulcer [Unknown]
  - Mucosal ulceration [Unknown]
  - Thrombocytopenia [Unknown]
  - Confusional state [Unknown]
  - Leukopenia [Unknown]
  - Bacterial infection [Unknown]
  - Pyrexia [Unknown]
  - Renal impairment [Unknown]
  - Urine output decreased [Unknown]
  - Dehydration [Unknown]
  - Type I hypersensitivity [Unknown]
  - Rash [Unknown]
  - Oedema mouth [Unknown]
  - Urticaria [Unknown]
  - Drug eruption [Unknown]
  - Hypotension [Unknown]
  - Arthralgia [Unknown]
  - Anaemia [Unknown]
